FAERS Safety Report 5880067-4 (Version None)
Quarter: 2008Q3

REPORT INFORMATION
  Report Type: 
  Country: None (occurrence: None)
  Receive Date: 20080911
  Receipt Date: 20080911
  Transmission Date: 20090109
  Serious: Yes (Life-Threatening, Hospitalization, Disabling, Other)
  Sender: FDA-Public Use
  Company Number: None

PATIENT
  Age: 92 Year
  Sex: Female

DRUGS (1)
  1. MEGESTROL ACETATE [Suspect]
     Indication: WEIGHT CONTROL
     Dosage: 2 TEASPOONSFUL BY MOUTH DAILY (10ML)
     Route: 048
     Dates: start: 20080723, end: 20080809

REACTIONS (23)
  - ABASIA [None]
  - ABDOMINAL PAIN UPPER [None]
  - ASTHENIA [None]
  - BACK PAIN [None]
  - CONFUSIONAL STATE [None]
  - CONVULSION [None]
  - DELIRIUM [None]
  - DELUSION [None]
  - DYSPNOEA [None]
  - EYE ROLLING [None]
  - FALL [None]
  - HALLUCINATION, VISUAL [None]
  - HEADACHE [None]
  - JOINT SWELLING [None]
  - LETHARGY [None]
  - MUSCULAR WEAKNESS [None]
  - MYOCARDIAL INFARCTION [None]
  - OEDEMA PERIPHERAL [None]
  - POSTURE ABNORMAL [None]
  - SALIVARY HYPERSECRETION [None]
  - SPEECH DISORDER [None]
  - URINARY TRACT INFECTION [None]
  - VISUAL IMPAIRMENT [None]
